FAERS Safety Report 8380969-3 (Version None)
Quarter: 2012Q2

REPORT INFORMATION
  Report Type: 
  Country: None (occurrence: None)
  Receive Date: 20120523
  Receipt Date: 20120521
  Transmission Date: 20120825
  Serious: Yes (Other)
  Sender: FDA-Public Use
  Company Number: US-BAYER-2012-050773

PATIENT
  Age: 19 Year
  Sex: Female

DRUGS (4)
  1. SODIUM CHLORIDE [Concomitant]
     Indication: ABDOMINAL PAIN
  2. MAGNEVIST [Suspect]
     Indication: MAGNETIC RESONANCE CHOLANGIOPANCREATOGRAPHY
     Dosage: 20 ML, ONCE
     Dates: start: 20120518, end: 20120518
  3. MAGNEVIST [Suspect]
     Indication: ABDOMINAL PAIN
  4. SODIUM CHLORIDE [Concomitant]
     Indication: MAGNETIC RESONANCE CHOLANGIOPANCREATOGRAPHY
     Dosage: 15 ML, UNK
     Dates: start: 20120518, end: 20120518

REACTIONS (5)
  - DYSPNOEA [None]
  - THROAT TIGHTNESS [None]
  - URTICARIA [None]
  - OEDEMA [None]
  - ANAPHYLACTIC REACTION [None]
